FAERS Safety Report 16644710 (Version 3)
Quarter: 2019Q4

REPORT INFORMATION
  Report Type: Spontaneous
  Country: US (occurrence: US)
  Receive Date: 20190729
  Receipt Date: 20191010
  Transmission Date: 20200122
  Serious: No
  Sender: FDA-Public Use
  Company Number: US-SA-2019SA199604

PATIENT
  Age: 29 Year
  Sex: Female

DRUGS (1)
  1. ENOXAPARIN SODIUM - WINTHROP [Suspect]
     Active Substance: ENOXAPARIN SODIUM
     Indication: THROMBOSIS
     Dosage: 40 MG, QD
     Route: 065
     Dates: start: 20190707, end: 20190709

REACTIONS (3)
  - Needle issue [Unknown]
  - Injection site pain [Unknown]
  - Syringe issue [Unknown]

NARRATIVE: CASE EVENT DATE: 20190707
